FAERS Safety Report 7158947-1 (Version None)
Quarter: 2010Q4

REPORT INFORMATION
  Report Type: 
  Country: None (occurrence: None)
  Receive Date: 20101126
  Receipt Date: 20101116
  Transmission Date: 20110411
  Serious: Yes (Hospitalization)
  Sender: FDA-Public Use
  Company Number: WSDF_00707

PATIENT
  Sex: Female

DRUGS (3)
  1. WINRHO SDF LIQUID [Suspect]
     Indication: IDIOPATHIC THROMBOCYTOPENIC PURPURA
     Dosage: (75 UG/KG TOTAL INTRAVENOUS)
     Route: 042
     Dates: start: 20080108, end: 20080108
  2. DECADRON [Concomitant]
  3. BENADRYL [Concomitant]

REACTIONS (8)
  - ACUTE CORONARY SYNDROME [None]
  - CONDITION AGGRAVATED [None]
  - CORONARY ARTERY DISEASE [None]
  - INFUSION RELATED REACTION [None]
  - MYOCARDIAL INFARCTION [None]
  - OVERDOSE [None]
  - PLATELET AGGREGATION [None]
  - TREMOR [None]
